FAERS Safety Report 23236945 (Version 1)
Quarter: 2023Q4

REPORT INFORMATION
  Report Type: Spontaneous
  Country: CN (occurrence: CN)
  Receive Date: 20231128
  Receipt Date: 20231128
  Transmission Date: 20240110
  Serious: Yes (Hospitalization, Other)
  Sender: FDA-Public Use
  Company Number: CN-HALEON-CNCH2023APC058015

PATIENT

DRUGS (1)
  1. IBUPROFEN [Suspect]
     Active Substance: IBUPROFEN
     Indication: Pyrexia
     Dosage: 0.3 G, BID
     Route: 048
     Dates: start: 20231106, end: 20231108

REACTIONS (17)
  - Melaena [Recovered/Resolved]
  - Upper gastrointestinal haemorrhage [Recovering/Resolving]
  - Peptic ulcer [Recovering/Resolving]
  - Shock haemorrhagic [Recovering/Resolving]
  - Blood loss anaemia [Recovering/Resolving]
  - Frequent bowel movements [Recovering/Resolving]
  - Asthenia [Recovering/Resolving]
  - Feeling cold [Recovering/Resolving]
  - Nausea [Recovered/Resolved]
  - Vomiting [Recovered/Resolved]
  - Dizziness [Recovering/Resolving]
  - Condition aggravated [Recovering/Resolving]
  - White blood cell count increased [Recovering/Resolving]
  - Red blood cell count decreased [Recovering/Resolving]
  - Listless [Recovering/Resolving]
  - Constipation [Recovering/Resolving]
  - Haemoglobin decreased [Recovering/Resolving]

NARRATIVE: CASE EVENT DATE: 20231108
